FAERS Safety Report 16851004 (Version 1)
Quarter: 2019Q3

REPORT INFORMATION
  Report Type: Spontaneous
  Country: CN (occurrence: CN)
  Receive Date: 20190925
  Receipt Date: 20190925
  Transmission Date: 20191005
  Serious: Yes (Disabling)
  Sender: FDA-Public Use
  Company Number: CN-PFIZER INC-2019408487

PATIENT
  Age: 13 Year
  Sex: Female
  Weight: 42.5 kg

DRUGS (1)
  1. ZAVEDOS [Suspect]
     Active Substance: IDARUBICIN
     Indication: THERAPEUTIC PROCEDURE
     Dosage: 10 MG, 1X/DAY
     Route: 041
     Dates: start: 20190811, end: 20190813

REACTIONS (1)
  - Hepatic function abnormal [Recovering/Resolving]

NARRATIVE: CASE EVENT DATE: 20190817
